FAERS Safety Report 4818504-6 (Version None)
Quarter: 2005Q4

REPORT INFORMATION
  Report Type: 
  Country: None (occurrence: None)
  Receive Date: 20051031
  Receipt Date: 20051031
  Transmission Date: 20060501
  Serious: Yes (Hospitalization)
  Sender: FDA-Public Use
  Company Number: None

PATIENT
  Age: 73 Year
  Sex: Male
  Weight: 73.0291 kg

DRUGS (2)
  1. HYDROCHLOROTHIAZIDE [Suspect]
     Indication: HYPOTENSION
     Dosage: 25 MG BY MOUTH DAILY
     Dates: start: 20040101, end: 20050101
  2. CITALOPRAM [Concomitant]

REACTIONS (1)
  - HYPONATRAEMIA [None]
